FAERS Safety Report 15619115 (Version 2)
Quarter: 2018Q4

REPORT INFORMATION
  Report Type: Spontaneous
  Country: US (occurrence: US)
  Receive Date: 20181114
  Receipt Date: 20181127
  Transmission Date: 20190205
  Serious: No
  Sender: FDA-Public Use
  Company Number: US-ASTRAZENECA-2018SF47394

PATIENT
  Sex: Female
  Weight: 54.4 kg

DRUGS (12)
  1. ASPRIN [Concomitant]
     Active Substance: ASPIRIN
  2. AZITHROMYCIN ANHYDROUS. [Concomitant]
     Active Substance: AZITHROMYCIN ANHYDROUS
  3. ATENOLOL. [Suspect]
     Active Substance: ATENOLOL
     Route: 065
  4. NORVASC [Concomitant]
     Active Substance: AMLODIPINE BESYLATE
  5. OXYGEN. [Concomitant]
     Active Substance: OXYGEN
  6. PRAMIPEXOLE DIHYDROCHLORIDE. [Concomitant]
     Active Substance: PRAMIPEXOLE DIHYDROCHLORIDE
  7. TUDORZA PRESSAIR [Suspect]
     Active Substance: ACLIDINIUM BROMIDE
     Indication: CHRONIC OBSTRUCTIVE PULMONARY DISEASE
     Dosage: 400.0UG UNKNOWN
     Route: 055
     Dates: start: 201808
  8. TUDORZA PRESSAIR [Suspect]
     Active Substance: ACLIDINIUM BROMIDE
     Indication: CHRONIC OBSTRUCTIVE PULMONARY DISEASE
     Dosage: 2 PUFFS ONCE A DAY UNKNOWN
     Route: 055
  9. ALENDRONATE SODIUM. [Concomitant]
     Active Substance: ALENDRONATE SODIUM
  10. MULTIVITAMIN [Concomitant]
     Active Substance: VITAMINS
  11. EZETIMIBE. [Concomitant]
     Active Substance: EZETIMIBE
  12. FUROSEMIDE. [Concomitant]
     Active Substance: FUROSEMIDE

REACTIONS (3)
  - Pulmonary function test decreased [Unknown]
  - Off label use [Unknown]
  - Device issue [Unknown]
